FAERS Safety Report 7226072-7 (Version None)
Quarter: 2011Q1

REPORT INFORMATION
  Report Type: 
  Country: None (occurrence: None)
  Receive Date: 20110113
  Receipt Date: 20110105
  Transmission Date: 20110831
  Serious: Yes (Death, Hospitalization, Other)
  Sender: FDA-Public Use
  Company Number: US-MERCK-1001USA03819

PATIENT
  Age: 59 Year
  Sex: Male

DRUGS (5)
  1. ZOMETA [Suspect]
     Route: 042
     Dates: end: 20060101
  2. AREDIA [Suspect]
     Route: 042
     Dates: start: 20000301, end: 20060101
  3. DIOVAN [Concomitant]
     Route: 065
     Dates: start: 19800101, end: 20071001
  4. METOPROLOL [Concomitant]
     Route: 065
     Dates: start: 19800101, end: 20071001
  5. FOSAMAX [Suspect]
     Indication: MULTIPLE MYELOMA
     Route: 048
     Dates: end: 20061101

REACTIONS (45)
  - DIARRHOEA [None]
  - PULMONARY EMBOLISM [None]
  - TOOTHACHE [None]
  - ENDODONTIC PROCEDURE [None]
  - EXOSTOSIS [None]
  - OSTEOMYELITIS [None]
  - PATHOLOGICAL FRACTURE [None]
  - OSTEOPOROSIS [None]
  - PULMONARY THROMBOSIS [None]
  - BLOOD DISORDER [None]
  - BENIGN PROSTATIC HYPERPLASIA [None]
  - BLADDER OBSTRUCTION [None]
  - HAEMORRHAGE [None]
  - DENTAL CARIES [None]
  - PERIODONTAL INFECTION [None]
  - DYSPNOEA [None]
  - CATARACT [None]
  - DEEP VEIN THROMBOSIS [None]
  - FEBRILE NEUTROPENIA [None]
  - BACK PAIN [None]
  - DEPRESSION [None]
  - TOOTH FRACTURE [None]
  - OSTEOARTHRITIS [None]
  - COUGH [None]
  - BUNION [None]
  - CYST [None]
  - ANXIETY [None]
  - NEUROPATHY PERIPHERAL [None]
  - SLEEP APNOEA SYNDROME [None]
  - OSTEONECROSIS OF JAW [None]
  - COLON CANCER METASTATIC [None]
  - SPINAL COMPRESSION FRACTURE [None]
  - APHAGIA [None]
  - OEDEMA PERIPHERAL [None]
  - MALIGNANT MELANOMA [None]
  - PAIN [None]
  - LIPOMA [None]
  - HEPATIC MASS [None]
  - VENOUS THROMBOSIS [None]
  - PLEURISY [None]
  - MULTIPLE MYELOMA [None]
  - OSTEOPENIA [None]
  - TOOTH DISORDER [None]
  - PNEUMONIA [None]
  - CHEST PAIN [None]
